FAERS Safety Report 14790584 (Version 1)
Quarter: 2018Q2

REPORT INFORMATION
  Report Type: Spontaneous
  Country: JP (occurrence: US)
  Receive Date: 20180423
  Receipt Date: 20180423
  Transmission Date: 20180711
  Serious: No
  Sender: FDA-Public Use
  Company Number: JP-SUNOVION-2018SUN001516

PATIENT
  Age: 10 Decade

DRUGS (1)
  1. LUNESTA [Suspect]
     Active Substance: ESZOPICLONE
     Dosage: 2 MG (DOSE UNKNOWN), UNK
     Route: 048

REACTIONS (1)
  - Dysgeusia [Unknown]
